FAERS Safety Report 11788696 (Version 1)
Quarter: 2015Q4

REPORT INFORMATION
  Report Type: Spontaneous
  Country: US (occurrence: None)
  Receive Date: 20151130
  Receipt Date: 20151130
  Transmission Date: 20160305
  Serious: Yes (Disabling)
  Sender: FDA-Public Use
  Company Number: None

PATIENT
  Age: 62 Year
  Sex: Female
  Weight: 56.7 kg

DRUGS (10)
  1. HYALURONIC ACID [Concomitant]
     Active Substance: HYALURONIC ACID
  2. BIOTIN [Concomitant]
     Active Substance: BIOTIN
  3. CAL-MAG-ZINC [Concomitant]
  4. CHARCOAL [Concomitant]
     Active Substance: ACTIVATED CHARCOAL
  5. COQ10 [Concomitant]
     Active Substance: UBIDECARENONE
  6. MULTI VITAMIN [Concomitant]
     Active Substance: VITAMINS
  7. PREVAGEN [Concomitant]
     Active Substance: DIETARY SUPPLEMENT
  8. PROLIA [Suspect]
     Active Substance: DENOSUMAB
     Indication: OSTEOPOROSIS
     Dosage: INJECTION 1/15 AND 7/15 TWICE A YEAR GIVEN INTO/UNDER THE SKIN?TWICE A YEAR
     Route: 058
  9. NIACIN. [Concomitant]
     Active Substance: NIACIN
  10. FISH OIL [Concomitant]
     Active Substance: FISH OIL

REACTIONS (4)
  - Abdominal pain [None]
  - Blood glucose abnormal [None]
  - Arthralgia [None]
  - Pain in extremity [None]
